FAERS Safety Report 17215893 (Version 2)
Quarter: 2020Q1

REPORT INFORMATION
  Report Type: Report from Study
  Country: None (occurrence: CO)
  Receive Date: 20191230
  Receipt Date: 20200331
  Transmission Date: 20200409
  Serious: Yes (Hospitalization)
  Sender: FDA-Public Use
  Company Number: CO-ABBVIE-19K-036-3214677-00

PATIENT
  Age: 29 Year
  Sex: Female
  Weight: 52 kg

DRUGS (1)
  1. HUMIRA [Suspect]
     Active Substance: ADALIMUMAB
     Indication: COLITIS ULCERATIVE
     Route: 058
     Dates: end: 20191212

REACTIONS (7)
  - Nasal herpes [Recovering/Resolving]
  - Herpes virus infection [Recovering/Resolving]
  - Epistaxis [Unknown]
  - Oral herpes [Unknown]
  - Colitis ulcerative [Recovering/Resolving]
  - Influenza [Not Recovered/Not Resolved]
  - Cough [Recovering/Resolving]

NARRATIVE: CASE EVENT DATE: 201910
